FAERS Safety Report 8422126-8 (Version None)
Quarter: 2012Q2

REPORT INFORMATION
  Report Type: 
  Country: None (occurrence: None)
  Receive Date: 20120608
  Receipt Date: 20120605
  Transmission Date: 20120825
  Serious: Yes (Death, Hospitalization)
  Sender: FDA-Public Use
  Company Number: PHHY2012LB048420

PATIENT
  Sex: Female

DRUGS (7)
  1. AMITRIPTYLINE HCL [Concomitant]
     Dosage: 1 DF, PER DAY
     Route: 048
     Dates: end: 20020101
  2. LASONET H [Concomitant]
     Dosage: 1 DF, PER DAY
     Route: 048
     Dates: end: 20100101
  3. GASTRIMUT [Concomitant]
     Dosage: 1 KBQ, PER DAY
     Route: 048
     Dates: end: 20070101
  4. AMLOGARD [Concomitant]
     Dosage: 1 DF, PER DAY
     Route: 048
     Dates: end: 20100101
  5. SECTRAL [Concomitant]
     Dosage: 1 DF, PER DAY
     Route: 048
  6. DIAMORIL [Concomitant]
     Dosage: 1 DF, PER DAY
     Dates: end: 20100101
  7. TASIGNA [Suspect]
     Indication: CHRONIC MYELOID LEUKAEMIA
     Dosage: 800 MG, UNK
     Route: 048
     Dates: start: 20100601

REACTIONS (2)
  - ACUTE PULMONARY OEDEMA [None]
  - CARDIAC ARREST [None]
